FAERS Safety Report 23617543 (Version 1)
Quarter: 2024Q1

REPORT INFORMATION
  Report Type: Spontaneous
  Country: JP (occurrence: JP)
  Receive Date: 20240311
  Receipt Date: 20240311
  Transmission Date: 20240410
  Serious: Yes (Other)
  Sender: FDA-Public Use
  Company Number: JP-BEH-2024169206

PATIENT
  Age: 3 Decade
  Sex: Female

DRUGS (4)
  1. BERINERT [Suspect]
     Active Substance: HUMAN C1-ESTERASE INHIBITOR
     Indication: Hereditary angioedema
     Dosage: UNK, PRN
     Route: 065
  2. BERINERT [Suspect]
     Active Substance: HUMAN C1-ESTERASE INHIBITOR
     Indication: Hereditary angioedema
     Dosage: UNK, PRN
     Route: 065
  3. BERINERT [Suspect]
     Active Substance: HUMAN C1-ESTERASE INHIBITOR
     Indication: Abdominal pain
     Dosage: ONCE EVERY FEW MONTHS, PRN
     Route: 041
  4. BERINERT [Suspect]
     Active Substance: HUMAN C1-ESTERASE INHIBITOR
     Indication: Abdominal pain
     Dosage: ONCE EVERY FEW MONTHS, PRN
     Route: 041

REACTIONS (3)
  - Vulvovaginal injury [Unknown]
  - No adverse event [Unknown]
  - Maternal exposure during pregnancy [Unknown]
